FAERS Safety Report 10045850 (Version 2)
Quarter: 2014Q2

REPORT INFORMATION
  Report Type: Spontaneous
  Country: FR (occurrence: FR)
  Receive Date: 20140329
  Receipt Date: 20140421
  Transmission Date: 20141212
  Serious: Yes (Hospitalization)
  Sender: FDA-Public Use
  Company Number: FR-ROCHE-1371500

PATIENT
  Age: 94 Year
  Sex: Female

DRUGS (1)
  1. ROCEPHINE [Suspect]
     Indication: BRONCHITIS
     Route: 058
     Dates: start: 20140131, end: 20140210

REACTIONS (2)
  - Disease progression [Recovered/Resolved]
  - Erythrodermic psoriasis [Recovered/Resolved]
